FAERS Safety Report 6202552-8 (Version None)
Quarter: 2009Q2

REPORT INFORMATION
  Report Type: 
  Country: None (occurrence: None)
  Receive Date: 20090526
  Receipt Date: 20090520
  Transmission Date: 20091009
  Serious: Yes (Other)
  Sender: FDA-Public Use
  Company Number: BE-BRISTOL-MYERS SQUIBB COMPANY-14636088

PATIENT
  Age: 6 Decade
  Sex: Female

DRUGS (6)
  1. APROVEL [Suspect]
     Dates: start: 20080101
  2. ARIMIDEX [Concomitant]
  3. BISOPROLOL [Concomitant]
  4. PRAXILENE [Concomitant]
  5. LIPITOR [Concomitant]
  6. ALLOPURINOL [Concomitant]

REACTIONS (1)
  - PANCREATITIS CHRONIC [None]
